FAERS Safety Report 12682855 (Version 1)
Quarter: 2016Q3

REPORT INFORMATION
  Report Type: Spontaneous
  Country: US (occurrence: None)
  Receive Date: 20160824
  Receipt Date: 20160824
  Transmission Date: 20161109
  Serious: Yes (Disabling, Other)
  Sender: FDA-Public Use
  Company Number: None

PATIENT
  Age: 67 Year
  Sex: Female
  Weight: 111.59 kg

DRUGS (6)
  1. ATORVASTATIN [Concomitant]
     Active Substance: ATORVASTATIN
  2. METOPROLOL. [Concomitant]
     Active Substance: METOPROLOL
  3. MULTAQ [Suspect]
     Active Substance: DRONEDARONE
     Indication: HEART RATE
     Dosage: 240 MG TWICE DAILY MOUTH
     Route: 048
     Dates: start: 20160108, end: 201602
  4. LISINOPRIL HCTZ [Concomitant]
     Active Substance: HYDROCHLOROTHIAZIDE\LISINOPRIL
  5. ASPIRIN. [Concomitant]
     Active Substance: ASPIRIN
  6. LEVOTHYROXINE. [Concomitant]
     Active Substance: LEVOTHYROXINE

REACTIONS (4)
  - Burning sensation [None]
  - Oropharyngeal pain [None]
  - Chest pain [None]
  - Dysphagia [None]

NARRATIVE: CASE EVENT DATE: 20160114
